FAERS Safety Report 21629700 (Version 2)
Quarter: 2023Q2

REPORT INFORMATION
  Report Type: Spontaneous
  Country: ES (occurrence: ES)
  Receive Date: 20221122
  Receipt Date: 20230428
  Transmission Date: 20230721
  Serious: Yes (Hospitalization, Other)
  Sender: FDA-Public Use
  Company Number: ES-MACLEODS PHARMACEUTICALS US LTD-MAC2022038318

PATIENT

DRUGS (6)
  1. LEVOFLOXACIN [Suspect]
     Active Substance: LEVOFLOXACIN
     Indication: Staphylococcal infection
     Dosage: UNK
     Route: 065
  2. LINEZOLID [Suspect]
     Active Substance: LINEZOLID
     Indication: Staphylococcal infection
     Dosage: UNK
     Route: 065
  3. COTRIMOXAZOLE [Suspect]
     Active Substance: SULFAMETHOXAZOLE\TRIMETHOPRIM
     Indication: Staphylococcal infection
     Dosage: UNK
     Route: 065
  4. CLOXACILLIN [Suspect]
     Active Substance: CLOXACILLIN
     Indication: Staphylococcal infection
     Dosage: UNK
     Route: 065
  5. DAPTOMYCIN [Suspect]
     Active Substance: DAPTOMYCIN
     Indication: Staphylococcal infection
     Dosage: UNK
     Route: 065
  6. DALBAVANCIN [Concomitant]
     Active Substance: DALBAVANCIN
     Indication: Staphylococcal infection
     Dosage: 1500 MILLIGRAM (1500MG BIWEEKLY FOR SEVERAL MONTHS)
     Route: 065

REACTIONS (1)
  - Haematotoxicity [Unknown]
